FAERS Safety Report 5585330-2 (Version None)
Quarter: 2008Q1

REPORT INFORMATION
  Report Type: 
  Country: None (occurrence: None)
  Receive Date: 20080109
  Receipt Date: 20071114
  Transmission Date: 20080703
  Serious: Yes (Disabling, Other)
  Sender: FDA-Public Use
  Company Number: US-PURDUE-USA_2007_0030675

PATIENT
  Sex: Male

DRUGS (1)
  1. OXYCONTIN [Suspect]
     Indication: OSTEOARTHRITIS
     Dates: start: 19970630, end: 20010630

REACTIONS (6)
  - ACTIVITIES OF DAILY LIVING IMPAIRED [None]
  - DRUG DEPENDENCE [None]
  - DRUG WITHDRAWAL SYNDROME [None]
  - MYOCARDIAL INFARCTION [None]
  - SOCIAL AVOIDANT BEHAVIOUR [None]
  - WEIGHT DECREASED [None]
